FAERS Safety Report 9897345 (Version 2)
Quarter: 2018Q2

REPORT INFORMATION
  Report Type: Report from Study
  Country: ZA (occurrence: ZA)
  Receive Date: 20140214
  Receipt Date: 20180605
  Transmission Date: 20180711
  Serious: Yes (Death, Hospitalization)
  Sender: FDA-Public Use
  Company Number: ZA-ROCHE-1348749

PATIENT
  Age: 62 Year
  Sex: Male

DRUGS (4)
  1. MIRCERA [Suspect]
     Active Substance: METHOXY POLYETHYLENE GLYCOL-EPOETIN BETA
     Dosage: MOST RECENT DOSE IN JAN/2014
     Route: 058
     Dates: start: 20130801
  2. MIRCERA [Suspect]
     Active Substance: METHOXY POLYETHYLENE GLYCOL-EPOETIN BETA
     Indication: NEPHROGENIC ANAEMIA
     Route: 058
     Dates: start: 201008
  3. VENOFER [Concomitant]
     Active Substance: IRON SUCROSE
     Route: 065
  4. MIRCERA [Suspect]
     Active Substance: METHOXY POLYETHYLENE GLYCOL-EPOETIN BETA
     Route: 058
     Dates: start: 201205

REACTIONS (2)
  - Pelvic fracture [Unknown]
  - Death [Fatal]

NARRATIVE: CASE EVENT DATE: 20140203
